FAERS Safety Report 7536785-5 (Version None)
Quarter: 2011Q2

REPORT INFORMATION
  Report Type: 
  Country: None (occurrence: None)
  Receive Date: 20110608
  Receipt Date: 20110608
  Transmission Date: 20111010
  Serious: Yes (Life-Threatening, Hospitalization)
  Sender: FDA-Public Use
  Company Number: None

PATIENT
  Sex: Female
  Weight: 80.7 kg

DRUGS (4)
  1. ALIMTA [Concomitant]
  2. LOVENOX [Concomitant]
  3. BEVACIZUMAB UNKNOWN UNKNOWN [Suspect]
     Indication: NON-SMALL CELL LUNG CANCER
     Dosage: 1190MG EVERY 3 WEEKS IV DRIP
     Route: 041
     Dates: start: 20110504, end: 20110527
  4. CARBOPLATIN [Concomitant]

REACTIONS (3)
  - ANAEMIA [None]
  - CHEST PAIN [None]
  - PULMONARY HAEMORRHAGE [None]
